FAERS Safety Report 4788104-5 (Version None)
Quarter: 2005Q3

REPORT INFORMATION
  Report Type: 
  Country: None (occurrence: None)
  Receive Date: 20050920
  Receipt Date: 20050616
  Transmission Date: 20060218
  Serious: No
  Sender: FDA-Public Use
  Company Number: US-JNJFOC-20050604869

PATIENT
  Sex: Female

DRUGS (1)
  1. ERTACZO [Suspect]
     Indication: TINEA PEDIS

REACTIONS (1)
  - DRUG INEFFECTIVE [None]
